FAERS Safety Report 19171237 (Version 1)
Quarter: 2021Q2

REPORT INFORMATION
  Report Type: Report from Study
  Country: US (occurrence: US)
  Receive Date: 20210423
  Receipt Date: 20210423
  Transmission Date: 20210717
  Serious: Yes (Hospitalization)
  Sender: FDA-Public Use
  Company Number: US-ROCHE-2810800

PATIENT
  Age: 69 Year
  Sex: Female
  Weight: 72.5 kg

DRUGS (3)
  1. ATEZOLIZUMAB. [Suspect]
     Active Substance: ATEZOLIZUMAB
     Indication: OVARIAN CANCER
     Dosage: LAST ADMINISTERED ON 22/DEC/2020
     Route: 042
     Dates: start: 20201208
  2. LIPOSOMAL DOXORUBICIN [Suspect]
     Active Substance: DOXORUBICIN HYDROCHLORIDE
     Indication: OVARIAN CANCER
     Dosage: LAST ADMINISTERED ON 08/DEC/2020
     Route: 042
     Dates: start: 20201013
  3. BEVACIZUMAB. [Suspect]
     Active Substance: BEVACIZUMAB
     Indication: OVARIAN CANCER
     Dosage: LAST ADMINISTERED ON 22/DEC/2020
     Route: 042
     Dates: start: 20201013

REACTIONS (3)
  - Rash vesicular [Unknown]
  - Pain [Unknown]
  - Stomatitis [Unknown]

NARRATIVE: CASE EVENT DATE: 20201216
